FAERS Safety Report 6293126-1 (Version None)
Quarter: 2009Q3

REPORT INFORMATION
  Report Type: 
  Country: None (occurrence: None)
  Receive Date: 20090731
  Receipt Date: 20090724
  Transmission Date: 20100115
  Serious: Yes (Life-Threatening, Hospitalization)
  Sender: FDA-Public Use
  Company Number: GB-TEVA-203992ISR

PATIENT
  Age: 51 Year
  Sex: Female

DRUGS (1)
  1. PROPRANOLOL HYDROCHLORIDE [Suspect]
     Indication: PANIC ATTACK

REACTIONS (4)
  - MYOCARDIAL INFARCTION [None]
  - PHAEOCHROMOCYTOMA [None]
  - PULMONARY OEDEMA [None]
  - RENAL FAILURE ACUTE [None]
